FAERS Safety Report 6875898-8 (Version None)
Quarter: 2010Q3

REPORT INFORMATION
  Report Type: 
  Country: None (occurrence: None)
  Receive Date: 20100727
  Receipt Date: 20100715
  Transmission Date: 20110219
  Serious: Yes (Hospitalization)
  Sender: FDA-Public Use
  Company Number: SE-ASTRAZENECA-2010SE33127

PATIENT
  Age: 89 Year
  Sex: Female

DRUGS (12)
  1. OMEPRAZOLE [Suspect]
     Indication: ESSENTIAL HYPERTENSION
     Route: 048
  2. ATACAND [Suspect]
     Indication: ESSENTIAL HYPERTENSION
     Route: 048
  3. FURIX [Suspect]
  4. SPIRONOLACTONE [Suspect]
     Indication: ESSENTIAL HYPERTENSION
  5. NORSPAN [Concomitant]
     Route: 062
  6. ACETAMINOPHEN [Concomitant]
  7. NITROMEX [Concomitant]
     Route: 060
  8. EMCONCOR [Concomitant]
  9. XALATAN [Concomitant]
     Dosage: 50 UG/ML
  10. ESTRADIOL [Concomitant]
  11. ASASANTIN [Concomitant]
     Dosage: 200 MG/25 MG
  12. TRIOBE [Concomitant]

REACTIONS (2)
  - BLOOD CREATININE INCREASED [None]
  - DIARRHOEA [None]
